FAERS Safety Report 16956070 (Version 6)
Quarter: 2024Q2

REPORT INFORMATION
  Report Type: Spontaneous
  Country: ES (occurrence: ES)
  Receive Date: 20191024
  Receipt Date: 20240412
  Transmission Date: 20240715
  Serious: Yes (Life-Threatening, Hospitalization)
  Sender: FDA-Public Use
  Company Number: None

PATIENT
  Age: 38 Year
  Sex: Male

DRUGS (4)
  1. PREGABALIN [Interacting]
     Active Substance: PREGABALIN
     Indication: Suicide attempt
     Dosage: PREGABALINA (3897A)
     Route: 048
     Dates: start: 20190901, end: 20190901
  2. MIRTAZAPINE [Interacting]
     Active Substance: MIRTAZAPINE
     Indication: Suicide attempt
     Dosage: MIRTAZAPINA (2704A)
     Route: 048
     Dates: start: 20190901, end: 20190901
  3. QUETIAPINE [Interacting]
     Active Substance: QUETIAPINE
     Indication: Suicide attempt
     Dosage: QUETIAPINA (1136A)
     Route: 048
     Dates: start: 20190901, end: 20190901
  4. COCAINE [Interacting]
     Active Substance: COCAINE
     Indication: Product used for unknown indication
     Dosage: OP1780 - COCA?NA, UNK
     Route: 065
     Dates: start: 20190901, end: 20190901

REACTIONS (1)
  - Coma [Recovered/Resolved]

NARRATIVE: CASE EVENT DATE: 20190901
